FAERS Safety Report 10085832 (Version 4)
Quarter: 2015Q2

REPORT INFORMATION
  Report Type: Spontaneous
  Country: US (occurrence: US)
  Receive Date: 20140418
  Receipt Date: 20150410
  Transmission Date: 20150821
  Serious: No
  Sender: FDA-Public Use
  Company Number: US-PFIZER INC-2014107188

PATIENT
  Age: 66 Year
  Sex: Female

DRUGS (1)
  1. INLYTA [Suspect]
     Active Substance: AXITINIB
     Indication: RENAL CANCER
     Dosage: 5 MG, 2X/DAY (5 MG Q 12 HOURS)
     Dates: start: 20140214

REACTIONS (3)
  - Nausea [Unknown]
  - Gallbladder disorder [Unknown]
  - Thrombocytopenia [Unknown]
